FAERS Safety Report 9516093 (Version 1)
Quarter: 2013Q3

REPORT INFORMATION
  Report Type: Spontaneous
  Country: CA (occurrence: None)
  Receive Date: 20130909
  Receipt Date: 20130909
  Transmission Date: 20140515
  Serious: Yes (Hospitalization)
  Sender: FDA-Public Use
  Company Number: CA-012879

PATIENT
  Age: 90 Year
  Sex: Male

DRUGS (1)
  1. DEGARELIX (FIRMAGON) 80 MG [Suspect]
     Indication: PROSTATE CANCER
     Dosage: 1X/MONTH
     Route: 058

REACTIONS (1)
  - Pneumonia [None]
